FAERS Safety Report 6643494-3 (Version None)
Quarter: 2010Q1

REPORT INFORMATION
  Report Type: 
  Country: None (occurrence: None)
  Receive Date: 20100319
  Receipt Date: 20100312
  Transmission Date: 20100710
  Serious: Yes (Hospitalization, Other)
  Sender: FDA-Public Use
  Company Number: US-AMGEN-US257363

PATIENT
  Sex: Male
  Weight: 102.5 kg

DRUGS (10)
  1. EPOGEN [Suspect]
     Indication: DIALYSIS
     Dates: start: 20060520
  2. PHOSLO [Concomitant]
     Dates: start: 20080116
  3. PROTONIX [Concomitant]
     Dates: start: 20070725
  4. LASIX [Concomitant]
     Dates: start: 20070705
  5. LISINOPRIL [Concomitant]
     Dates: start: 20070515
  6. SODIUM BICARBONATE [Concomitant]
     Dates: start: 20060920
  7. ATENOLOL [Concomitant]
     Dates: start: 20060524
  8. COUMADIN [Concomitant]
     Dates: start: 20060524
  9. AMARYL [Concomitant]
     Dates: start: 20060524
  10. ZEMPLAR [Concomitant]

REACTIONS (5)
  - APLASIA PURE RED CELL [None]
  - CARDIAC DISORDER [None]
  - HAEMOGLOBIN DECREASED [None]
  - HAEMORRHOIDS [None]
  - PLATELET COUNT DECREASED [None]
